FAERS Safety Report 8803122 (Version 1)
Quarter: 2012Q4

REPORT INFORMATION
  Report Type: 
  Country: EC (occurrence: EC)
  Receive Date: 20120924
  Receipt Date: 20120924
  Transmission Date: 20130627
  Serious: Yes (Death)
  Sender: FDA-Public Use
  Company Number: PHHY2012EC082349

PATIENT

DRUGS (1)
  1. TRILEPTAL [Suspect]
     Dosage: 600 mg, UNK
     Route: 048

REACTIONS (1)
  - Death [Fatal]
